FAERS Safety Report 10778645 (Version 1)
Quarter: 2015Q1

REPORT INFORMATION
  Report Type: Spontaneous
  Country: US (occurrence: US)
  Receive Date: 20150210
  Receipt Date: 20150210
  Transmission Date: 20150721
  Serious: Yes (Hospitalization)
  Sender: FDA-Public Use
  Company Number: US-ASTRAZENECA-2015SE12326

PATIENT
  Age: 772 Month
  Sex: Male
  Weight: 107 kg

DRUGS (6)
  1. GLYBURIDE. [Concomitant]
     Active Substance: GLYBURIDE
     Route: 048
  2. BYDUREON [Suspect]
     Active Substance: EXENATIDE
     Indication: TYPE 2 DIABETES MELLITUS
     Route: 058
  3. LOSARTAN [Concomitant]
     Active Substance: LOSARTAN
     Route: 048
  4. HTC [Concomitant]
     Dosage: EVERY DAY
     Route: 065
  5. METFORMIN [Concomitant]
     Active Substance: METFORMIN HYDROCHLORIDE
     Indication: TYPE 2 DIABETES MELLITUS
     Route: 048
  6. PIOGLITAZONE [Concomitant]
     Active Substance: PIOGLITAZONE
     Route: 048

REACTIONS (2)
  - Staphylococcal infection [Unknown]
  - Drug dose omission [Unknown]

NARRATIVE: CASE EVENT DATE: 201405
